FAERS Safety Report 5935971-5 (Version None)
Quarter: 2008Q4

REPORT INFORMATION
  Report Type: 
  Country: None (occurrence: None)
  Receive Date: 20081030
  Receipt Date: 20081023
  Transmission Date: 20090506
  Serious: Yes (Hospitalization, Other)
  Sender: FDA-Public Use
  Company Number: US-MERCK-0810USA04231

PATIENT
  Age: 83 Year
  Sex: Male

DRUGS (2)
  1. DECADRON [Suspect]
     Indication: MULTIPLE MYELOMA
     Route: 048
     Dates: start: 20080722
  2. REVLIMID [Suspect]
     Indication: MULTIPLE MYELOMA
     Route: 048
     Dates: start: 20080722

REACTIONS (4)
  - DECREASED APPETITE [None]
  - DEEP VEIN THROMBOSIS [None]
  - INFLUENZA LIKE ILLNESS [None]
  - PULMONARY EMBOLISM [None]
